FAERS Safety Report 15881723 (Version 1)
Quarter: 2019Q1

REPORT INFORMATION
  Report Type: Spontaneous
  Country: US (occurrence: US)
  Receive Date: 20190128
  Receipt Date: 20190128
  Transmission Date: 20190417
  Serious: No
  Sender: FDA-Public Use
  Company Number: US-SA-2019SA019977

PATIENT
  Age: 74 Year
  Sex: Male

DRUGS (7)
  1. TAMIFLU [Concomitant]
     Active Substance: OSELTAMIVIR PHOSPHATE
  2. PANTOPRAZOLE [Concomitant]
     Active Substance: PANTOPRAZOLE
  3. VIRACEPT [Concomitant]
     Active Substance: NELFINAVIR MESYLATE
  4. VITAMIN C [Concomitant]
     Active Substance: ASCORBIC ACID
  5. ALLOPURINOL. [Concomitant]
     Active Substance: ALLOPURINOL
  6. PRALUENT [Suspect]
     Active Substance: ALIROCUMAB
     Indication: PRODUCT USED FOR UNKNOWN INDICATION
     Dosage: 150 MG, QOW
     Route: 058
     Dates: start: 20160513
  7. IRON [Concomitant]
     Active Substance: IRON

REACTIONS (1)
  - Diarrhoea [Unknown]

NARRATIVE: CASE EVENT DATE: 20190117
